FAERS Safety Report 23844802 (Version 1)
Quarter: 2024Q2

REPORT INFORMATION
  Report Type: Spontaneous
  Country: US (occurrence: US)
  Receive Date: 20240511
  Receipt Date: 20240511
  Transmission Date: 20240717
  Serious: No
  Sender: FDA-Public Use
  Company Number: US-CIPLA LTD.-2024US03652

PATIENT

DRUGS (3)
  1. ALBUTEROL [Suspect]
     Active Substance: ALBUTEROL
     Indication: Chronic obstructive pulmonary disease
     Dosage: 180 MCG, PRN (2 PUFFS AS NEEDED)
     Dates: start: 2022
  2. ALBUTEROL [Suspect]
     Active Substance: ALBUTEROL
     Dosage: UNK, PRN
     Dates: start: 20240326
  3. ALBUTEROL [Suspect]
     Active Substance: ALBUTEROL
     Dosage: UNK, PRN
     Dates: start: 2024

REACTIONS (4)
  - Device delivery system issue [Unknown]
  - Device mechanical issue [Unknown]
  - Product quality issue [Unknown]
  - Dry mouth [Not Recovered/Not Resolved]

NARRATIVE: CASE EVENT DATE: 20220101
